FAERS Safety Report 10366264 (Version 1)
Quarter: 2014Q3

REPORT INFORMATION
  Report Type: Spontaneous
  Country: TR (occurrence: TR)
  Receive Date: 20140806
  Receipt Date: 20140806
  Transmission Date: 20150326
  Serious: Yes (Hospitalization, Other)
  Sender: FDA-Public Use
  Company Number: TR-WATSON-2014-16632

PATIENT
  Age: 20 Year
  Sex: Male

DRUGS (2)
  1. METHYLPREDNISOLONE (UNKNOWN) [Suspect]
     Active Substance: METHYLPREDNISOLONE
     Indication: ANAPHYLACTIC REACTION
     Dosage: 40 MG, UNKNOWN
     Route: 042
  2. CHLORPHENIRAMINE                   /00072501/ [Concomitant]
     Active Substance: CHLORPHENIRAMINE
     Indication: ANAPHYLACTIC REACTION
     Dosage: 10 MG, UNK
     Route: 042

REACTIONS (2)
  - Mitral valve incompetence [Recovered/Resolved]
  - Myocardial infarction [Recovering/Resolving]
